FAERS Safety Report 5581068-6 (Version None)
Quarter: 2007Q4

REPORT INFORMATION
  Report Type: 
  Country: None (occurrence: None)
  Receive Date: 20071227
  Receipt Date: 20071220
  Transmission Date: 20080405
  Serious: Yes (Death, Life-Threatening, Hospitalization)
  Sender: FDA-Public Use
  Company Number: 028-C5013-07090035

PATIENT
  Age: 70 Year
  Sex: Female
  Weight: 66.5 kg

DRUGS (1)
  1. CC-5013(LENALIDOMIDE) (CAPSULES) [Suspect]
     Indication: NON-HODGKIN'S LYMPHOMA
     Dosage: 25 MG, OD X 21 DAYS Q 28 DAYS, ORAL
     Route: 048
     Dates: start: 20070824, end: 20070827

REACTIONS (16)
  - BRADYCARDIA [None]
  - CARDIAC ANEURYSM [None]
  - CARDIAC ARREST [None]
  - CEREBELLAR INFARCTION [None]
  - CEREBRAL INFARCTION [None]
  - CEREBROVASCULAR ACCIDENT [None]
  - DEEP VEIN THROMBOSIS [None]
  - DEPRESSED LEVEL OF CONSCIOUSNESS [None]
  - ELECTROMECHANICAL DISSOCIATION [None]
  - HYPERCALCAEMIA [None]
  - INTRACARDIAC THROMBUS [None]
  - LYMPHOMA [None]
  - PERICARDIAL EFFUSION [None]
  - PLEURAL EFFUSION [None]
  - PULMONARY EMBOLISM [None]
  - PULMONARY OEDEMA [None]
